FAERS Safety Report 11254748 (Version 1)
Quarter: 2015Q3

REPORT INFORMATION
  Report Type: Spontaneous
  Country: US (occurrence: None)
  Receive Date: 20150708
  Receipt Date: 20150708
  Transmission Date: 20151125
  Serious: Yes (Disabling)
  Sender: FDA-Public Use
  Company Number: None

PATIENT
  Age: 31 Year
  Sex: Female

DRUGS (1)
  1. OLAY TOTAL EFFECTS CC TONE CORRECTING BROAD SPECTRUM SPF 15 FAIR TO LIGHT [Suspect]
     Active Substance: AVOBENZONE\OCTISALATE\OCTOCRYLENE
     Indication: THERAPEUTIC SKIN CARE TOPICAL
     Dates: start: 20150705, end: 20150706

REACTIONS (4)
  - Skin burning sensation [None]
  - Application site pain [None]
  - Application site swelling [None]
  - Application site erythema [None]

NARRATIVE: CASE EVENT DATE: 20150705
